FAERS Safety Report 17242998 (Version 2)
Quarter: 2020Q2

REPORT INFORMATION
  Report Type: Spontaneous
  Country: US (occurrence: US)
  Receive Date: 20200107
  Receipt Date: 20200416
  Transmission Date: 20200713
  Serious: Yes (Hospitalization)
  Sender: FDA-Public Use
  Company Number: US-VYERA PHARMACEUTICALS, LLC-2019VYE00068

PATIENT
  Age: 69 Year
  Sex: Male

DRUGS (15)
  1. CLINDAMYCIN. [Concomitant]
     Active Substance: CLINDAMYCIN
  2. ^LECETIRACETA^ [Concomitant]
  3. MYCOPHENOLAT [Concomitant]
     Active Substance: MYCOPHENOLATE MOFETIL
  4. MAG OXIDE [Concomitant]
     Active Substance: MAGNESIUM OXIDE
  5. TACROLIMUS. [Concomitant]
     Active Substance: TACROLIMUS
  6. LEUCOVOR [Concomitant]
  7. PHYTONADIONE. [Concomitant]
     Active Substance: PHYTONADIONE
  8. POT CL MICRO [Concomitant]
  9. PREDNISONE. [Concomitant]
     Active Substance: PREDNISONE
  10. TENOFOVIR [Concomitant]
     Active Substance: TENOFOVIR
  11. AMLODIPINE [Concomitant]
     Active Substance: AMLODIPINE BESYLATE
  12. DARAPRIM [Suspect]
     Active Substance: PYRIMETHAMINE
     Dosage: UNK
     Route: 048
  13. TAMSULOSIN [Concomitant]
     Active Substance: TAMSULOSIN
  14. FINASTERIDE. [Concomitant]
     Active Substance: FINASTERIDE
  15. LOSARTAN. [Concomitant]
     Active Substance: LOSARTAN

REACTIONS (2)
  - Diarrhoea [Unknown]
  - Dehydration [Unknown]

NARRATIVE: CASE EVENT DATE: 201912
